FAERS Safety Report 8721731 (Version 2)
Quarter: 2012Q4

REPORT INFORMATION
  Report Type: 
  Country: US (occurrence: US)
  Receive Date: 20120814
  Receipt Date: 20120920
  Transmission Date: 20130627
  Serious: No
  Sender: FDA-Public Use
  Company Number: US-PFIZER INC-2012193775

PATIENT
  Age: 47 Year
  Sex: Female

DRUGS (2)
  1. ACCUPRIL [Suspect]
     Dosage: 20 mg, 1x/day
  2. ZOLOFT [Suspect]
     Dosage: Strength 100, ^two something once daily^

REACTIONS (1)
  - Malaise [Unknown]
